FAERS Safety Report 14031478 (Version 3)
Quarter: 2019Q2

REPORT INFORMATION
  Report Type: Report from Study
  Country: BR (occurrence: BR)
  Receive Date: 20171002
  Receipt Date: 20190530
  Transmission Date: 20190711
  Serious: Yes (Hospitalization, Other)
  Sender: FDA-Public Use
  Company Number: BR-BAYER-2017-184564

PATIENT
  Age: 35 Year
  Sex: Female

DRUGS (9)
  1. NEXAVAR [Suspect]
     Active Substance: SORAFENIB
     Indication: HEPATOCELLULAR CARCINOMA
     Dosage: 400 MG, QD
     Dates: start: 201707, end: 20180815
  2. NUBAIN [Concomitant]
     Active Substance: NALBUPHINE HYDROCHLORIDE
     Dosage: UNK
     Dates: start: 20170819, end: 20170824
  3. NEXAVAR [Suspect]
     Active Substance: SORAFENIB
     Indication: HEPATOCELLULAR CARCINOMA
     Dosage: 800 MG, QD
     Dates: start: 20170411, end: 2017
  4. NEXAVAR [Suspect]
     Active Substance: SORAFENIB
     Indication: HEPATOCELLULAR CARCINOMA
     Dosage: 600 MG, QD
     Dates: start: 2017, end: 201706
  5. DIPIRONA [Concomitant]
     Active Substance: METAMIZOLE
     Dosage: UNK
     Dates: start: 20170819, end: 20170824
  6. DIMORF [Concomitant]
     Active Substance: MORPHINE SULFATE
     Dosage: UNK
     Dates: start: 20170819, end: 20170824
  7. NEXAVAR [Suspect]
     Active Substance: SORAFENIB
     Indication: HEPATOCELLULAR CARCINOMA
     Dosage: 800 MG, QD
     Dates: start: 2017, end: 201705
  8. BROMOPRIDE [Concomitant]
     Active Substance: BROMOPRIDE
     Dosage: UNK
     Dates: start: 20170819, end: 20170824
  9. OMEPRAZOL [OMEPRAZOLE] [Concomitant]
     Active Substance: OMEPRAZOLE
     Dosage: UNK
     Dates: start: 20170819, end: 20170824

REACTIONS (15)
  - Metastases to lung [None]
  - Diarrhoea [Recovered/Resolved]
  - Metastases to diaphragm [None]
  - Abdominal distension [Recovered/Resolved]
  - Hepatectomy [Unknown]
  - Hyperkeratosis [Recovered/Resolved]
  - Hepatic haemorrhage [None]
  - Dehydration [Recovered/Resolved]
  - Drug ineffective [None]
  - Hepatocellular carcinoma [None]
  - Localised infection [Recovered/Resolved]
  - Metastases to the mediastinum [None]
  - Procedural haemorrhage [None]
  - Abdominal pain upper [Recovered/Resolved]
  - Palmar-plantar erythrodysaesthesia syndrome [Recovered/Resolved]

NARRATIVE: CASE EVENT DATE: 20170819
